FAERS Safety Report 9993170 (Version 2)
Quarter: 2014Q1

REPORT INFORMATION
  Report Type: Report from Study
  Country: US (occurrence: US)
  Receive Date: 20140310
  Receipt Date: 20140310
  Transmission Date: 20141002
  Serious: No
  Sender: FDA-Public Use
  Company Number: US-ABBVIE-12P-163-0999773-00

PATIENT
  Sex: Female

DRUGS (2)
  1. LUPRON DEPOT [Suspect]
     Indication: MATERNAL EXPOSURE TIMING UNSPECIFIED
     Route: 064
  2. LUPRON DEPOT [Suspect]
     Route: 063

REACTIONS (4)
  - Foetal exposure during pregnancy [Unknown]
  - Jaundice [Recovered/Resolved]
  - Exposure during breast feeding [Unknown]
  - Weight decrease neonatal [Recovered/Resolved]
